FAERS Safety Report 8053096-2 (Version None)
Quarter: 2012Q1

REPORT INFORMATION
  Report Type: 
  Country: None (occurrence: None)
  Receive Date: 20120118
  Receipt Date: 20120112
  Transmission Date: 20120608
  Serious: Yes (Death)
  Sender: FDA-Public Use
  Company Number: GR-PFIZER INC-2012008898

PATIENT
  Age: 74 Year
  Sex: Male

DRUGS (8)
  1. CIPROFLOXACIN [Concomitant]
  2. VORICONAZOLE [Suspect]
     Indication: TRICHOSPORON INFECTION
     Dosage: 200 MG, 2X/DAY FROM DAY 21
  3. COLISTIN [Concomitant]
     Indication: ACINETOBACTER INFECTION
  4. ANIDULAFUNGIN [Concomitant]
     Indication: TRICHOSPORON INFECTION
     Dosage: 200MG X1 FROM DAY 13 TO DAY 16
  5. FLUCONAZOLE [Suspect]
     Indication: TRICHOSPORON INFECTION
     Dosage: 400 MG, 2X/DAY FROM DAY 16
  6. VANCOMYCIN [Concomitant]
  7. GENTAMICIN [Concomitant]
  8. COLISTIN [Concomitant]
     Indication: KLEBSIELLA INFECTION

REACTIONS (2)
  - DRUG INEFFECTIVE [None]
  - FUNGAEMIA [None]
